FAERS Safety Report 10204896 (Version 1)
Quarter: 2014Q2

REPORT INFORMATION
  Report Type: Spontaneous
  Country: AU (occurrence: AU)
  Receive Date: 20140529
  Receipt Date: 20140529
  Transmission Date: 20141212
  Serious: Yes (Other)
  Sender: FDA-Public Use
  Company Number: AU-TEVA-482470ISR

PATIENT
  Sex: Male

DRUGS (1)
  1. GASTROSTOP CAPS 2MG [Suspect]

REACTIONS (1)
  - Basedow^s disease [Unknown]
